FAERS Safety Report 11877953 (Version 3)
Quarter: 2016Q1

REPORT INFORMATION
  Report Type: Report from Study
  Country: US (occurrence: US)
  Receive Date: 20151230
  Receipt Date: 20160209
  Transmission Date: 20160526
  Serious: Yes (Other)
  Sender: FDA-Public Use
  Company Number: US-BEH-2015057166

PATIENT
  Sex: Female

DRUGS (1)
  1. ZEMAIRA [Suspect]
     Active Substance: .ALPHA.1-PROTEINASE INHIBITOR HUMAN
     Indication: PRODUCT USED FOR UNKNOWN INDICATION
     Dosage: LAST INFUSION
     Dates: start: 20151215

REACTIONS (8)
  - Chest discomfort [Unknown]
  - Night blindness [Unknown]
  - Oxygen supplementation [Unknown]
  - Post procedural infection [Unknown]
  - Neck surgery [Unknown]
  - Dyspnoea [Unknown]
  - Choking [Unknown]
  - Dysphagia [Unknown]
